FAERS Safety Report 23253224 (Version 1)
Quarter: 2023Q4

REPORT INFORMATION
  Report Type: Other
  Country: FR (occurrence: FR)
  Receive Date: 20231202
  Receipt Date: 20231202
  Transmission Date: 20240110
  Serious: Yes (Hospitalization)
  Sender: FDA-Public Use
  Company Number: None

PATIENT

DRUGS (6)
  1. PAROXETINE [Suspect]
     Active Substance: PAROXETINE
     Indication: Poisoning deliberate
     Dosage: UNK
     Route: 048
     Dates: start: 20231103
  2. ALPRAZOLAM [Suspect]
     Active Substance: ALPRAZOLAM
     Indication: Poisoning deliberate
     Dosage: UNK
     Route: 048
     Dates: start: 20231103
  3. QUETIAPINE [Suspect]
     Active Substance: QUETIAPINE
     Indication: Poisoning deliberate
     Dosage: UNK
     Route: 048
     Dates: start: 20231103
  4. TERALITHE [Suspect]
     Active Substance: LITHIUM CARBONATE
     Indication: Poisoning deliberate
     Dosage: UNK
     Route: 048
     Dates: start: 20231103
  5. PHLOROGLUCINOL [Suspect]
     Active Substance: PHLOROGLUCINOL
     Indication: Poisoning deliberate
     Dosage: UNK
     Route: 048
     Dates: start: 20231103
  6. RACECADOTRIL [Suspect]
     Active Substance: RACECADOTRIL
     Indication: Poisoning deliberate
     Dosage: UNK
     Route: 048
     Dates: start: 20231103

REACTIONS (2)
  - Altered state of consciousness [Recovered/Resolved]
  - Poisoning deliberate [Recovered/Resolved]

NARRATIVE: CASE EVENT DATE: 20231103
